FAERS Safety Report 6544320-3 (Version None)
Quarter: 2010Q1

REPORT INFORMATION
  Report Type: 
  Country: None (occurrence: None)
  Receive Date: 20100120
  Receipt Date: 20100120
  Transmission Date: 20100710
  Serious: Yes (Other)
  Sender: FDA-Public Use
  Company Number: None

PATIENT
  Age: 55 Year
  Sex: Female
  Weight: 99.7913 kg

DRUGS (1)
  1. MIRAPEX [Suspect]
     Indication: RESTLESS LEGS SYNDROME
     Dosage: .75MG 2 TIMES A DAY PO
     Route: 048
     Dates: start: 20070101, end: 20100118

REACTIONS (2)
  - GAMBLING [None]
  - IMPULSIVE BEHAVIOUR [None]
